FAERS Safety Report 4753315-1 (Version None)
Quarter: 2005Q3

REPORT INFORMATION
  Report Type: 
  Country: None (occurrence: None)
  Receive Date: 20050824
  Receipt Date: 20050815
  Transmission Date: 20060218
  Serious: Yes (Other)
  Sender: FDA-Public Use
  Company Number: 2005US001134

PATIENT
  Age: 79 Year
  Sex: Male
  Weight: 68.9 kg

DRUGS (3)
  1. ADENOSCAN [Suspect]
     Indication: SCAN MYOCARDIAL PERFUSION
     Dosage: IV NOS
     Route: 042
     Dates: start: 20050726, end: 20050726
  2. LOPRESSOR [Concomitant]
  3. VASOTEC [Concomitant]

REACTIONS (1)
  - SYNCOPE [None]
